FAERS Safety Report 8225586-0 (Version None)
Quarter: 2012Q1

REPORT INFORMATION
  Report Type: 
  Country: None (occurrence: None)
  Receive Date: 20120321
  Receipt Date: 20120312
  Transmission Date: 20120608
  Serious: Yes (Death)
  Sender: FDA-Public Use
  Company Number: GXBR2012US000859

PATIENT
  Sex: Male
  Weight: 92.971 kg

DRUGS (2)
  1. LISINOPRIL [Concomitant]
     Indication: HYPERTENSION
     Dosage: UNK MG, UNK
  2. BUPROPION HCL [Suspect]
     Indication: SMOKING CESSATION THERAPY
     Dosage: 150 MG, QD
     Route: 048
     Dates: start: 20111117

REACTIONS (5)
  - CHILLS [None]
  - BACK PAIN [None]
  - MYOCARDIAL INFARCTION [None]
  - INSOMNIA [None]
  - PALPITATIONS [None]
